FAERS Safety Report 5733892-4 (Version None)
Quarter: 2008Q2

REPORT INFORMATION
  Report Type: 
  Country: None (occurrence: None)
  Receive Date: 20080509
  Receipt Date: 20080502
  Transmission Date: 20081010
  Serious: Yes (Congenital Anomaly)
  Sender: FDA-Public Use
  Company Number: US-GILEAD-2008-0016375

PATIENT

DRUGS (4)
  1. ATRIPLA [Suspect]
     Indication: HIV INFECTION
     Route: 064
     Dates: end: 20080108
  2. DYAZIDE [Concomitant]
     Route: 064
  3. KALETRA [Concomitant]
     Route: 064
  4. COMBIVIR [Concomitant]
     Route: 064

REACTIONS (1)
  - ANENCEPHALY [None]
